FAERS Safety Report 9844596 (Version 1)
Quarter: 2014Q1

REPORT INFORMATION
  Report Type: Spontaneous
  Country: GB (occurrence: None)
  Receive Date: 20140122
  Receipt Date: 20140122
  Transmission Date: 20141002
  Serious: Yes (Other)
  Sender: FDA-Public Use
  Company Number: AUR-APL-2014-00417

PATIENT
  Age: 13 Year
  Sex: Female
  Weight: 50.8 kg

DRUGS (2)
  1. LEVETIRACETAM (LEVETIRACETAM) [Suspect]
     Indication: PRODUCT USED FOR UNKNOWN INDICATION
     Dosage: 1000 MG (500 MG, 2 IN 1 D), ORAL
     Route: 048
     Dates: start: 20131122
  2. EPILIUM (VALPROATE SODIUM) [Concomitant]

REACTIONS (1)
  - Alopecia [None]
